FAERS Safety Report 4413712-0 (Version None)
Quarter: 2004Q2

REPORT INFORMATION
  Report Type: 
  Country: None (occurrence: None)
  Receive Date: 20040630
  Receipt Date: 20040302
  Transmission Date: 20050107
  Serious: No
  Sender: FDA-Public Use
  Company Number: 04P-163-0251913-00

PATIENT
  Age: 64 Year
  Sex: Female
  Weight: 102.5129 kg

DRUGS (7)
  1. HUMIRA [Suspect]
     Indication: RHEUMATOID ARTHRITIS
     Dosage: 40 MG, 1 IN 2 WK, SUBCUTANEOUS
     Route: 058
     Dates: start: 20040210, end: 20040224
  2. AZULFINDINE [Concomitant]
  3. ESTROGEN REPLACEMENT [Concomitant]
  4. LANSOPRAZOLE [Concomitant]
  5. LEKOVIT CA [Concomitant]
  6. CETIRIZINE HCL [Concomitant]
  7. LEVOTHYROXINE SODIUM [Concomitant]

REACTIONS (2)
  - NASOPHARYNGITIS [None]
  - OEDEMA PERIPHERAL [None]
